FAERS Safety Report 7264619-5 (Version None)
Quarter: 2011Q1

REPORT INFORMATION
  Report Type: 
  Country: None (occurrence: None)
  Receive Date: 20110131
  Receipt Date: 20110121
  Transmission Date: 20110831
  Serious: No
  Sender: FDA-Public Use
  Company Number: US-PFIZER INC-2011016200

PATIENT
  Sex: Female
  Weight: 90.703 kg

DRUGS (4)
  1. ALEVE [Suspect]
     Dosage: UNK
  2. CELEBREX [Suspect]
     Indication: ARTHRITIS
     Dosage: 200 MG, DAILY
     Route: 048
     Dates: start: 20110117
  3. ADVIL [Suspect]
     Dosage: UNK
  4. ACETYLSALICYLIC ACID [Suspect]
     Dosage: UNK

REACTIONS (2)
  - EUPHORIC MOOD [None]
  - EPISTAXIS [None]
